FAERS Safety Report 7809170-6 (Version None)
Quarter: 2011Q4

REPORT INFORMATION
  Report Type: 
  Country: None (occurrence: None)
  Receive Date: 20111012
  Receipt Date: 20100113
  Transmission Date: 20120403
  Serious: Yes (Other)
  Sender: FDA-Public Use
  Company Number: GB-UCBSA-004466

PATIENT
  Sex: Female

DRUGS (3)
  1. MISOPROSTOL [Suspect]
     Indication: ABORTION INDUCED
     Route: 048
     Dates: start: 20091126
  2. ACETAMINOPHEN AND CODEINE PHOSPHATE [Suspect]
     Dates: start: 20091126
  3. MIFEPRISTONE (MIFEPREX) [Suspect]
     Indication: ABORTION INDUCED
     Route: 048
     Dates: start: 20091124

REACTIONS (2)
  - SWELLING FACE [None]
  - DYSPNOEA [None]
